FAERS Safety Report 7303074 (Version 7)
Quarter: 2013Q2

REPORT INFORMATION
  Report Type: Spontaneous
  Country: US (occurrence: US)
  Receive Date: 20100303
  Receipt Date: 20130513
  Transmission Date: 20140414
  Serious: Yes (Hospitalization, Other)
  Sender: FDA-Public Use
  Company Number: US-BAYER-201015106NA

PATIENT
  Age: 19 Year
  Sex: Female
  Weight: 66 kg

DRUGS (14)
  1. YAZ [Suspect]
     Indication: PREMENSTRUAL SYNDROME
     Dosage: AS USED DOSE: UNK
     Route: 048
     Dates: start: 200511, end: 20070315
  2. YAZ [Suspect]
     Indication: ACNE
     Dosage: AS USED DOSE: UNK
     Route: 048
  3. DESOGESTREL W/ETHINYLESTRADIOL [Concomitant]
  4. XANAX [Concomitant]
     Indication: ANXIETY
  5. ECLIPSE [Concomitant]
  6. LORTAB [Concomitant]
     Dosage: 5 MG, UNK
     Route: 048
  7. ZOFRAN [Concomitant]
     Dosage: 4 MG, UNK
     Route: 048
  8. ALBUTEROL [Concomitant]
  9. ANALGESICS [Concomitant]
  10. PHENERGAN [Concomitant]
  11. PROMETHAZINE HYDROCHLORIDE [Concomitant]
  12. HYDROCODONE W/ACETAMINOPHEN [Concomitant]
  13. ACCUTANE [Concomitant]
     Dosage: 20-80 MG
     Route: 048
     Dates: start: 2009
  14. CELEXA [Concomitant]
     Dosage: 40-60 MG
     Route: 048
     Dates: start: 200810

REACTIONS (7)
  - Deep vein thrombosis [None]
  - Pain in extremity [None]
  - Local swelling [None]
  - Biliary dyskinesia [None]
  - Cholecystitis chronic [None]
  - Mental disorder [None]
  - Emotional disorder [None]
